FAERS Safety Report 6056699-X (Version None)
Quarter: 2009Q1

REPORT INFORMATION
  Report Type: 
  Country: None (occurrence: None)
  Receive Date: 20090129
  Receipt Date: 20080225
  Transmission Date: 20090719
  Serious: No
  Sender: FDA-Public Use
  Company Number: A0713003A

PATIENT
  Sex: Male

DRUGS (3)
  1. EPIVIR [Suspect]
     Indication: HIV INFECTION
     Route: 065
  2. ZIAGEN [Suspect]
     Indication: HIV INFECTION
     Dosage: 300MG UNKNOWN
     Route: 065
  3. KALETRA [Suspect]
     Indication: HIV INFECTION
     Dosage: 200MG UNKNOWN
     Route: 065

REACTIONS (4)
  - BLADDER DISORDER [None]
  - DYSURIA [None]
  - FLATULENCE [None]
  - HYPOAESTHESIA [None]
